FAERS Safety Report 10568877 (Version 2)
Quarter: 2014Q4

REPORT INFORMATION
  Report Type: Spontaneous
  Country: DE (occurrence: DE)
  Receive Date: 20141106
  Receipt Date: 20141202
  Transmission Date: 20150529
  Serious: Yes (Death)
  Sender: FDA-Public Use
  Company Number: DE-009507513-1411DEU001050

PATIENT

DRUGS (1)
  1. EZETROL [Suspect]
     Active Substance: EZETIMIBE
     Route: 048

REACTIONS (2)
  - Adverse event [Unknown]
  - Death [Fatal]
